FAERS Safety Report 15106225 (Version 1)
Quarter: 2018Q3

REPORT INFORMATION
  Report Type: Report from Study
  Country: FR (occurrence: FR)
  Receive Date: 20180704
  Receipt Date: 20180704
  Transmission Date: 20181010
  Serious: Yes (Other)
  Sender: FDA-Public Use
  Company Number: FR-ACCORD-069052

PATIENT

DRUGS (11)
  1. UROMITEXAN [Suspect]
     Active Substance: MESNA
     Indication: NON-HODGKIN^S LYMPHOMA
     Dosage: MESNA WAS INFUSED BEFORE, AND 4 HOURS AND 8 H AFTER EACH CYCLOPHOSPHAMIDE INFUSION, WITH A TOTAL DOS
     Route: 065
  2. CISPLATIN. [Suspect]
     Active Substance: CISPLATIN
     Indication: NON-HODGKIN^S LYMPHOMA
     Dosage: DAY 1,
     Route: 065
  3. ETOPOSIDE. [Suspect]
     Active Substance: ETOPOSIDE
     Indication: NON-HODGKIN^S LYMPHOMA
     Dosage: DAY 1 AND DAY 2
     Route: 065
  4. DOXORUBICIN [Suspect]
     Active Substance: DOXORUBICIN
     Indication: NON-HODGKIN^S LYMPHOMA
     Dosage: DAY 1, CYCLE 1,CYCLE 2,CYCLE 3,CYCLE 4
     Route: 065
  5. CYCLOPHOSPHAMIDE. [Suspect]
     Active Substance: CYCLOPHOSPHAMIDE
     Indication: NON-HODGKIN^S LYMPHOMA
     Dosage: STRENGTH:1000 MG, DAY 1
     Route: 065
  6. BENZYLPENICILLIN [Concomitant]
     Active Substance: PENICILLIN G
     Indication: PROPHYLAXIS
     Dosage: 1 * 10^6 TWICE DAILY
     Route: 048
  7. VINCRISTINE [Suspect]
     Active Substance: VINCRISTINE
     Indication: NON-HODGKIN^S LYMPHOMA
     Dosage: DAY 1, CYCLE 1 , CYCLE 2, CYCLE 3 ,CYCLE 4
     Route: 065
  8. CIPROFLOXACIN. [Concomitant]
     Active Substance: CIPROFLOXACIN
     Indication: PROPHYLAXIS
     Route: 048
  9. GRANULOCYTE COLONY STIMULATING [Concomitant]
     Active Substance: GRANULOCYTE COLONY-STIMULATING FACTOR NOS
     Indication: PRODUCT USED FOR UNKNOWN INDICATION
     Dosage: STARTED AT DAY 6 FOR MINIMUM OF 7 DAYS
     Route: 058
  10. PREDNISONE. [Suspect]
     Active Substance: PREDNISONE
     Indication: NON-HODGKIN^S LYMPHOMA
     Dosage: DAY 1 TO DAY 4, CYCLE 4
     Route: 065
  11. METHOTREXATE. [Concomitant]
     Active Substance: METHOTREXATE
     Indication: PROPHYLAXIS
     Dosage: C1 AND C2 IN OUTPATIENT SETTING AND C3 AND C4 IN HOSPITAL. THE PATIENT HAD TO BE HO
     Route: 037

REACTIONS (1)
  - Nephropathy toxic [Recovered/Resolved]
